FAERS Safety Report 25471938 (Version 1)
Quarter: 2025Q2

REPORT INFORMATION
  Report Type: Spontaneous
  Country: US (occurrence: US)
  Receive Date: 20250624
  Receipt Date: 20250624
  Transmission Date: 20250717
  Serious: No
  Sender: Kenvue
  Company Number: US-KENVUE-20250608632

PATIENT
  Sex: Female

DRUGS (2)
  1. TYLENOL 8 HR ARTHRITIS PAIN [Suspect]
     Active Substance: ACETAMINOPHEN
     Indication: Arthritis
     Dosage: 2 DOSAGE FORM, FOUR TIME A DAY
     Route: 065
     Dates: start: 202412
  2. TYLENOL 8 HR ARTHRITIS PAIN [Suspect]
     Active Substance: ACETAMINOPHEN
     Indication: Arthralgia

REACTIONS (1)
  - Overdose [Unknown]
